FAERS Safety Report 7350533-3 (Version None)
Quarter: 2011Q1

REPORT INFORMATION
  Report Type: 
  Country: None (occurrence: None)
  Receive Date: 20110222
  Receipt Date: 20101130
  Transmission Date: 20110831
  Serious: No
  Sender: FDA-Public Use
  Company Number: 022976

PATIENT
  Sex: Male
  Weight: 81.7 kg

DRUGS (3)
  1. LACOSAMIDE [Suspect]
     Indication: PAIN IN EXTREMITY
     Dosage: (50 MG BID, AM AND PM ORAL)
     Route: 048
     Dates: start: 20101119, end: 20101120
  2. HYDROCODONE BITARTRATE [Concomitant]
  3. GABAPENTIN [Concomitant]

REACTIONS (2)
  - ABDOMINAL DISCOMFORT [None]
  - ABDOMINAL PAIN UPPER [None]
